FAERS Safety Report 10204154 (Version 1)
Quarter: 2014Q2

REPORT INFORMATION
  Report Type: Report from Study
  Country: FR (occurrence: FR)
  Receive Date: 20140529
  Receipt Date: 20140529
  Transmission Date: 20141212
  Serious: Yes (Hospitalization)
  Sender: FDA-Public Use
  Company Number: FR-PFIZER INC-2014145435

PATIENT
  Age: 59 Year
  Sex: Female

DRUGS (3)
  1. MORPHINE SULFATE [Suspect]
     Dosage: UNK
  2. OXYCONTIN [Suspect]
     Indication: HEPATIC PAIN
     Dosage: UNK
  3. OXYNORMORO [Suspect]
     Indication: HEPATIC PAIN
     Dosage: UNK

REACTIONS (5)
  - Abdominal discomfort [Unknown]
  - Drug intolerance [Unknown]
  - Vomiting [Unknown]
  - Pain [Unknown]
  - General physical health deterioration [Unknown]
